FAERS Safety Report 7651238-1 (Version None)
Quarter: 2011Q3

REPORT INFORMATION
  Report Type: 
  Country: None (occurrence: None)
  Receive Date: 20110802
  Receipt Date: 20110721
  Transmission Date: 20111222
  Serious: Yes (Hospitalization)
  Sender: FDA-Public Use
  Company Number: US-ELI_LILLY_AND_COMPANY-US201107006165

PATIENT
  Sex: Female

DRUGS (7)
  1. LANTUS [Concomitant]
     Dosage: UNK
  2. HUMALOG [Suspect]
     Indication: DIABETES MELLITUS
     Dosage: 8 U, BID
     Dates: start: 20110501
  3. HUMALOG [Suspect]
     Dosage: 12 U, QD
     Dates: start: 20110501
  4. HUMALOG [Suspect]
     Dosage: 12 U, QD
     Dates: start: 20110401, end: 20110501
  5. HUMULIN N [Suspect]
     Indication: DIABETES MELLITUS
     Dosage: UNK
     Dates: start: 20100101, end: 20110401
  6. HUMULIN R [Suspect]
     Indication: DIABETES MELLITUS
     Dosage: UNK
     Dates: start: 20100101, end: 20110401
  7. HUMALOG [Suspect]
     Dosage: 8 U, BID
     Dates: start: 20110401, end: 20110501

REACTIONS (6)
  - FALL [None]
  - HYPOGLYCAEMIC COMA [None]
  - CEREBROVASCULAR ACCIDENT [None]
  - MUSCULOSKELETAL DISCOMFORT [None]
  - CONTUSION [None]
  - MOBILITY DECREASED [None]
